FAERS Safety Report 7595296-1 (Version None)
Quarter: 2011Q3

REPORT INFORMATION
  Report Type: 
  Country: None (occurrence: None)
  Receive Date: 20110707
  Receipt Date: 20110627
  Transmission Date: 20111222
  Serious: Yes (Hospitalization)
  Sender: FDA-Public Use
  Company Number: IE-AMGEN-IRLSP2011032735

PATIENT
  Sex: Male

DRUGS (16)
  1. ARANESP [Suspect]
     Indication: MYELODYSPLASTIC SYNDROME
     Dosage: 150 A?G, QWK
     Route: 058
     Dates: start: 20110426
  2. WHOLE BLOOD [Concomitant]
  3. AUGMENTIN '125' [Concomitant]
  4. GALFER [Concomitant]
  5. PROTHIADEN [Concomitant]
  6. CARDICOR [Concomitant]
  7. SERETIDE [Concomitant]
  8. RAMIL [Concomitant]
  9. LANSOPRAZOLE [Concomitant]
  10. PLAVIX [Concomitant]
  11. LACRI-LUBE [Concomitant]
  12. RANEXA [Concomitant]
  13. LIPITOR [Concomitant]
  14. FOSAMAX [Concomitant]
  15. ZIMOVANE [Concomitant]
  16. ARTELAC                            /00002701/ [Concomitant]

REACTIONS (1)
  - MALAISE [None]
